FAERS Safety Report 5211695-7 (Version None)
Quarter: 2007Q1

REPORT INFORMATION
  Report Type: 
  Country: None (occurrence: None)
  Receive Date: 20070118
  Receipt Date: 20070108
  Transmission Date: 20070707
  Serious: Yes (Hospitalization)
  Sender: FDA-Public Use
  Company Number: FR-BAYER-200710040BFR

PATIENT
  Age: 86 Year
  Sex: Female

DRUGS (7)
  1. MOXIFLOXACIN HYDROCHLORIDE [Suspect]
     Indication: PNEUMONIA
     Dosage: TOTAL DAILY DOSE: 400 MG  UNIT DOSE: 400 MG
     Route: 048
     Dates: start: 20060316
  2. CHRONADALATE [Suspect]
     Indication: ESSENTIAL HYPERTENSION
     Dosage: TOTAL DAILY DOSE: 30 MG  UNIT DOSE: 30 MG
     Route: 048
  3. TRIATEC [Concomitant]
     Indication: ESSENTIAL HYPERTENSION
     Route: 048
  4. XATRAL [Concomitant]
     Indication: URINARY RETENTION
     Dosage: UNIT DOSE: 10 MG
     Route: 048
     Dates: start: 20060127
  5. LASIX [Concomitant]
     Indication: ESSENTIAL HYPERTENSION
     Dosage: TOTAL DAILY DOSE: 40 MG  UNIT DOSE: 40 MG
     Route: 048
  6. PRAVASTATIN [Concomitant]
     Indication: DYSLIPIDAEMIA
     Dosage: TOTAL DAILY DOSE: 20 MG  UNIT DOSE: 20 MG
     Route: 048
  7. COLPOTROPHINE [Concomitant]
     Route: 067

REACTIONS (1)
  - CLOSTRIDIUM DIFFICILE COLITIS [None]
